FAERS Safety Report 18264308 (Version 3)
Quarter: 2020Q4

REPORT INFORMATION
  Report Type: Report from Study
  Country: CO (occurrence: CO)
  Receive Date: 20200914
  Receipt Date: 20201123
  Transmission Date: 20210113
  Serious: Yes (Disabling, Other)
  Sender: FDA-Public Use
  Company Number: CO-BRISTOL-MYERS SQUIBB COMPANY-BMS-2019-046809

PATIENT
  Age: 62 Year
  Sex: Female

DRUGS (1)
  1. ABATACEPT [Suspect]
     Active Substance: ABATACEPT
     Dosage: 125 MILLIGRAM, QWK
     Route: 058
     Dates: start: 20160609

REACTIONS (17)
  - Inflammation [Recovering/Resolving]
  - Oedema peripheral [Recovering/Resolving]
  - Ecchymosis [Unknown]
  - Arthralgia [Recovering/Resolving]
  - Hypersensitivity [Recovering/Resolving]
  - Arthralgia [Recovering/Resolving]
  - Fall [Recovering/Resolving]
  - Limb mass [Recovering/Resolving]
  - Urticaria [Recovering/Resolving]
  - Humerus fracture [Recovering/Resolving]
  - Diarrhoea [Recovered/Resolved]
  - Pyrexia [Unknown]
  - Oral herpes [Unknown]
  - Pain in extremity [Recovering/Resolving]
  - Rash [Recovering/Resolving]
  - Dizziness [Recovering/Resolving]
  - General physical health deterioration [Unknown]

NARRATIVE: CASE EVENT DATE: 20190429
